FAERS Safety Report 20420247 (Version 1)
Quarter: 2022Q1

REPORT INFORMATION
  Report Type: Report from Study
  Country: US (occurrence: US)
  Receive Date: 20220203
  Receipt Date: 20220203
  Transmission Date: 20220423
  Serious: Yes (Other)
  Sender: FDA-Public Use
  Company Number: US-ABBVIE-21K-163-4210254-00

PATIENT
  Age: 55 Year
  Sex: Male
  Weight: 88.530 kg

DRUGS (10)
  1. HUMIRA [Suspect]
     Active Substance: ADALIMUMAB
     Indication: Ankylosing spondylitis
     Route: 058
  2. HUMIRA [Suspect]
     Active Substance: ADALIMUMAB
     Dosage: CITRATE FREE
     Route: 058
     Dates: start: 202107, end: 20211104
  3. HUMIRA [Suspect]
     Active Substance: ADALIMUMAB
     Dosage: CITRATE FREE
     Route: 058
     Dates: start: 20211210
  4. IBUPROFEN [Concomitant]
     Active Substance: IBUPROFEN
     Indication: Pain
  5. IBUPROFEN [Concomitant]
     Active Substance: IBUPROFEN
     Indication: Ankylosing spondylitis
  6. GABAPENTIN [Concomitant]
     Active Substance: GABAPENTIN
     Indication: Pain
  7. CLONAZEPAM [Concomitant]
     Active Substance: CLONAZEPAM
     Indication: Visual impairment
  8. MODERNA COVID-19 VACCINE [Concomitant]
     Active Substance: ELASOMERAN
     Indication: COVID-19 immunisation
     Dosage: FIRST DOSE
     Route: 030
     Dates: start: 202104, end: 202104
  9. MODERNA COVID-19 VACCINE [Concomitant]
     Active Substance: ELASOMERAN
     Dosage: SECOND DOSE
     Route: 030
     Dates: start: 202105, end: 202105
  10. MODERNA COVID-19 VACCINE [Concomitant]
     Active Substance: ELASOMERAN
     Dosage: BOOSTER DOSE
     Route: 030
     Dates: start: 202112, end: 202112

REACTIONS (10)
  - Nerve compression [Recovered/Resolved]
  - Exostosis [Recovered/Resolved]
  - Cervical spinal stenosis [Recovered/Resolved]
  - Radiculopathy [Recovered/Resolved]
  - Nerve compression [Recovered/Resolved]
  - Spinal disorder [Recovered/Resolved]
  - Migraine [Not Recovered/Not Resolved]
  - Migraine with aura [Not Recovered/Not Resolved]
  - Migraine [Recovered/Resolved]
  - Product lot number issue [Unknown]

NARRATIVE: CASE EVENT DATE: 20210101
